FAERS Safety Report 25347818 (Version 2)
Quarter: 2025Q2

REPORT INFORMATION
  Report Type: Spontaneous
  Country: AR (occurrence: AR)
  Receive Date: 20250522
  Receipt Date: 20250605
  Transmission Date: 20250716
  Serious: Yes (Other)
  Sender: MYLAN
  Company Number: AR-MYLANLABS-2025M1033601

PATIENT
  Age: 22 Year
  Sex: Male

DRUGS (6)
  1. CLOZAPINE [Suspect]
     Active Substance: CLOZAPINE
     Indication: Schizoaffective disorder bipolar type
     Dosage: 150 MILLIGRAM, QD
     Dates: start: 20250313
  2. CLOZAPINE [Suspect]
     Active Substance: CLOZAPINE
     Indication: Substance use disorder
  3. PIMAVANSERIN [Suspect]
     Active Substance: PIMAVANSERIN
     Indication: Schizoaffective disorder bipolar type
     Dosage: 34 MILLIGRAM, QD
  4. PIMAVANSERIN [Suspect]
     Active Substance: PIMAVANSERIN
     Indication: Substance use disorder
  5. DIAZEPAM [Suspect]
     Active Substance: DIAZEPAM
     Indication: Schizoaffective disorder bipolar type
     Dosage: 20 MILLIGRAM, QD
  6. DIAZEPAM [Suspect]
     Active Substance: DIAZEPAM
     Indication: Substance use disorder

REACTIONS (4)
  - Neutropenia [Recovered/Resolved]
  - Leukocytosis [Recovered/Resolved]
  - Neutrophil count increased [Recovered/Resolved]
  - Off label use [Unknown]

NARRATIVE: CASE EVENT DATE: 20250313
